FAERS Safety Report 8965278 (Version 1)
Quarter: 2012Q4

REPORT INFORMATION
  Report Type: 
  Country: US (occurrence: US)
  Receive Date: 20121213
  Receipt Date: 20121213
  Transmission Date: 20130627
  Serious: No
  Sender: FDA-Public Use
  Company Number: US-PFIZER INC-2012315561

PATIENT
  Sex: Female

DRUGS (2)
  1. PRISTIQ [Suspect]
     Indication: ANXIETY
     Dosage: UNK
     Route: 048
  2. PRISTIQ [Suspect]
     Indication: DEPRESSION
     Dosage: 25 mg (cutting the 50 mg tablet into half), UNK
     Route: 048
     Dates: end: 20121210

REACTIONS (3)
  - Drug administration error [Unknown]
  - Nervous system disorder [Unknown]
  - Wrong technique in drug usage process [Unknown]
